FAERS Safety Report 11388016 (Version 1)
Quarter: 2015Q3

REPORT INFORMATION
  Report Type: Spontaneous
  Country: US (occurrence: US)
  Receive Date: 20150817
  Receipt Date: 20150817
  Transmission Date: 20151125
  Serious: No
  Sender: FDA-Public Use
  Company Number: US-GLAXOSMITHKLINE-US2015GSK114836

PATIENT
  Sex: Female
  Weight: 65.31 kg

DRUGS (2)
  1. WELLBUTRIN XL [Suspect]
     Active Substance: BUPROPION HYDROCHLORIDE
     Indication: LIBIDO DECREASED
     Dosage: 150 MG, BID
     Route: 048
  2. WELLBUTRIN XL [Suspect]
     Active Substance: BUPROPION HYDROCHLORIDE
     Indication: OFF LABEL USE
     Dosage: 300 MG, QD
     Route: 048
     Dates: end: 201507

REACTIONS (2)
  - Dysphemia [Recovered/Resolved]
  - Off label use [Unknown]
